FAERS Safety Report 20216058 (Version 3)
Quarter: 2022Q1

REPORT INFORMATION
  Report Type: Other
  Country: CA (occurrence: None)
  Receive Date: 20211222
  Receipt Date: 20220217
  Transmission Date: 20220424
  Serious: Yes (Hospitalization, Other)
  Sender: FDA-Public Use
  Company Number: CA-ROCHE-2849582

PATIENT
  Age: 75 Year
  Sex: Female
  Weight: 86.2 kg

DRUGS (20)
  1. ACTEMRA [Suspect]
     Active Substance: TOCILIZUMAB
     Indication: Erdheim-Chester disease
     Route: 058
     Dates: start: 20210604, end: 2021
  2. GABAPENTIN [Suspect]
     Active Substance: GABAPENTIN
     Indication: Product used for unknown indication
     Route: 065
  3. PEGASYS [Suspect]
     Active Substance: PEGINTERFERON ALFA-2A
     Indication: Product used for unknown indication
     Route: 065
  4. INTERFERON [Suspect]
     Active Substance: INTERFERON
     Indication: Product used for unknown indication
     Route: 065
  5. TELMISARTAN [Concomitant]
     Active Substance: TELMISARTAN
     Indication: Product used for unknown indication
  6. VITAMIN D3 [Concomitant]
     Active Substance: CHOLECALCIFEROL
  7. ROSUVASTATIN [Concomitant]
     Active Substance: ROSUVASTATIN
     Indication: Product used for unknown indication
  8. ASPIRIN [Concomitant]
     Active Substance: ASPIRIN
     Indication: Product used for unknown indication
  9. HYDROCHLOROTHIAZIDE [Concomitant]
     Active Substance: HYDROCHLOROTHIAZIDE
     Indication: Product used for unknown indication
  10. VITAMIN D3 [Concomitant]
     Active Substance: CHOLECALCIFEROL
  11. METAMUCIL [Concomitant]
     Active Substance: PLANTAGO SEED
     Indication: Product used for unknown indication
  12. POLYETHYLENE GLYCOL 3350 [Concomitant]
     Active Substance: POLYETHYLENE GLYCOL 3350
     Indication: Product used for unknown indication
  13. SENNOSIDES A AND B [Concomitant]
     Active Substance: SENNOSIDES A AND B
     Indication: Product used for unknown indication
  14. GABAPENTIN [Concomitant]
     Active Substance: GABAPENTIN
  15. LORAZEPAM [Concomitant]
     Active Substance: LORAZEPAM
  16. ONDANSETRON [Concomitant]
     Active Substance: ONDANSETRON
     Indication: Nausea
  17. TELMISARTAN [Concomitant]
     Active Substance: TELMISARTAN
  18. AMOXICILLIN [Concomitant]
     Active Substance: AMOXICILLIN
     Dates: start: 20211003
  19. METFORMIN [Concomitant]
     Active Substance: METFORMIN HYDROCHLORIDE
  20. CITALOPRAM [Concomitant]
     Active Substance: CITALOPRAM HYDROBROMIDE

REACTIONS (34)
  - Malaise [Not Recovered/Not Resolved]
  - Tremor [Not Recovered/Not Resolved]
  - Bladder disorder [Unknown]
  - Faeces soft [Unknown]
  - Urinary retention [Not Recovered/Not Resolved]
  - Hypertension [Unknown]
  - Head discomfort [Unknown]
  - Off label use [Unknown]
  - Gastrointestinal disorder [Unknown]
  - Dizziness [Not Recovered/Not Resolved]
  - Feeling abnormal [Unknown]
  - Depression [Unknown]
  - Decreased appetite [Recovering/Resolving]
  - Nausea [Not Recovered/Not Resolved]
  - Pain in extremity [Unknown]
  - Ill-defined disorder [Unknown]
  - General physical health deterioration [Not Recovered/Not Resolved]
  - Neck pain [Not Recovered/Not Resolved]
  - Drug ineffective [Unknown]
  - Constipation [Recovered/Resolved]
  - Blood pressure increased [Unknown]
  - Asthenia [Not Recovered/Not Resolved]
  - Productive cough [Unknown]
  - Tremor [Unknown]
  - Nausea [Unknown]
  - Anxiety [Unknown]
  - Drug ineffective [Unknown]
  - Weight decreased [Unknown]
  - Eye pain [Not Recovered/Not Resolved]
  - Micturition urgency [Recovering/Resolving]
  - Urinary tract infection [Recovered/Resolved]
  - Micturition disorder [Recovered/Resolved]
  - Cystitis [Unknown]
  - Blood bilirubin increased [Recovering/Resolving]

NARRATIVE: CASE EVENT DATE: 20210606
